FAERS Safety Report 9752760 (Version 1)
Quarter: 2013Q4

REPORT INFORMATION
  Report Type: Spontaneous
  Country: DK (occurrence: FR)
  Receive Date: 20131213
  Receipt Date: 20131213
  Transmission Date: 20140711
  Serious: Yes (Hospitalization)
  Sender: FDA-Public Use
  Company Number: FR-FRI-1000052209

PATIENT
  Age: 86 Year
  Sex: Female

DRUGS (6)
  1. ESCITALOPRAM [Suspect]
     Dosage: 1 DF
     Route: 048
  2. PREVISCAN [Suspect]
     Indication: ATRIAL FIBRILLATION
     Route: 048
     Dates: end: 20131001
  3. AMLOR [Suspect]
     Dosage: 1 DF
     Route: 048
  4. FUROSEMIDE [Suspect]
     Dosage: 1 DF
     Route: 048
  5. LEVOTHYROX [Suspect]
     Dosage: 150 MCG
     Route: 048
  6. CONTRAMAL [Suspect]
     Route: 048

REACTIONS (1)
  - Subdural haematoma [Not Recovered/Not Resolved]
